FAERS Safety Report 8985809 (Version 3)
Quarter: 2013Q1

REPORT INFORMATION
  Report Type: Report from Study
  Country: US (occurrence: US)
  Receive Date: 20121226
  Receipt Date: 20130215
  Transmission Date: 20140127
  Serious: Yes (Hospitalization)
  Sender: FDA-Public Use
  Company Number: US-ACTELION-A-US2012-76353

PATIENT
  Age: 68 Year
  Sex: Male

DRUGS (8)
  1. VELETRI [Suspect]
     Indication: PULMONARY ARTERIAL HYPERTENSION
     Dosage: 7.5 NG/KG, UNK
     Route: 042
     Dates: start: 20121219
  2. VELETRI [Suspect]
     Dosage: 7 NG/KG, PER MIN
     Route: 042
     Dates: start: 20121127
  3. TRACLEER [Suspect]
     Indication: PULMONARY ARTERIAL HYPERTENSION
     Dosage: 125 MG, BID
     Route: 048
     Dates: start: 20091016
  4. TRACLEER [Suspect]
     Dosage: 62.5 MG, BID
     Route: 048
     Dates: start: 20090905, end: 20091015
  5. VENTAVIS [Suspect]
     Indication: PULMONARY ARTERIAL HYPERTENSION
     Dosage: UNK
     Route: 055
  6. OPIOIDS [Suspect]
  7. SILDENAFIL [Concomitant]
  8. COUMADIN [Concomitant]

REACTIONS (15)
  - Obstructive uropathy [Recovered/Resolved]
  - Urinary retention [Recovered/Resolved]
  - Muscle spasms [Unknown]
  - Malaise [Unknown]
  - Catheter placement [Unknown]
  - Diarrhoea [Unknown]
  - Abdominal pain [Recovered/Resolved]
  - Fluid retention [Recovered/Resolved]
  - Urine output decreased [Recovered/Resolved]
  - Oedema [Recovered/Resolved]
  - Ascites [Recovered/Resolved]
  - Periorbital oedema [Recovered/Resolved]
  - Local swelling [Unknown]
  - Pain in extremity [Unknown]
  - Gait disturbance [Unknown]
